FAERS Safety Report 11254506 (Version 4)
Quarter: 2015Q4

REPORT INFORMATION
  Report Type: Spontaneous
  Country: US (occurrence: US)
  Receive Date: 20150709
  Receipt Date: 20151012
  Transmission Date: 20160304
  Serious: No
  Sender: FDA-Public Use
  Company Number: US-PFIZER INC-2015225966

PATIENT
  Age: 75 Year
  Sex: Female

DRUGS (2)
  1. PRISTIQ EXTENDED RELEASE [Suspect]
     Active Substance: DESVENLAFAXINE SUCCINATE
     Indication: DEPRESSION
     Dosage: 50 MG, DAILY
     Dates: start: 20120305, end: 2012
  2. PRISTIQ EXTENDED RELEASE [Suspect]
     Active Substance: DESVENLAFAXINE SUCCINATE
     Dosage: 100 MG, DAILY
     Dates: start: 2012

REACTIONS (9)
  - Fatigue [Unknown]
  - Insomnia [Not Recovered/Not Resolved]
  - Headache [Unknown]
  - Drug effect incomplete [Unknown]
  - Anxiety [Not Recovered/Not Resolved]
  - Condition aggravated [Unknown]
  - Blood sodium decreased [Not Recovered/Not Resolved]
  - Depression [Unknown]
  - Tremor [Unknown]

NARRATIVE: CASE EVENT DATE: 2012
